FAERS Safety Report 8048036-6 (Version None)
Quarter: 2012Q1

REPORT INFORMATION
  Report Type: 
  Country: None (occurrence: None)
  Receive Date: 20120117
  Receipt Date: 20120110
  Transmission Date: 20120608
  Serious: Yes (Hospitalization, Other)
  Sender: FDA-Public Use
  Company Number: DE-BIOGENIDEC-2011BI035673

PATIENT
  Age: 43 Year
  Sex: Female

DRUGS (8)
  1. TYSABRI [Suspect]
     Route: 042
     Dates: start: 20100706
  2. FLUOXETINE [Concomitant]
     Indication: DEPRESSION
     Dates: start: 20110301
  3. TYSABRI [Suspect]
     Indication: RELAPSING-REMITTING MULTIPLE SCLEROSIS
     Route: 042
     Dates: start: 20100706
  4. TYSABRI [Suspect]
     Route: 042
     Dates: start: 20100706
  5. TYSABRI [Suspect]
     Route: 042
     Dates: start: 20100706
  6. TYSABRI [Suspect]
     Route: 042
     Dates: start: 20100706
  7. TYSABRI [Suspect]
     Route: 042
     Dates: start: 20100706
  8. UNSPECIFIED CONTRACEPTIVE [Concomitant]
     Route: 048
     Dates: start: 19960101

REACTIONS (1)
  - CALCULUS URETERIC [None]
